FAERS Safety Report 5837899-8 (Version None)
Quarter: 2008Q3

REPORT INFORMATION
  Report Type: 
  Country: None (occurrence: None)
  Receive Date: 20080808
  Receipt Date: 20080801
  Transmission Date: 20090109
  Serious: Yes (Hospitalization)
  Sender: FDA-Public Use
  Company Number: PHHY2008JP16783

PATIENT
  Sex: Male

DRUGS (5)
  1. COMTAN [Suspect]
     Indication: DRUG EFFECT DECREASED
     Dosage: 500 MG
     Route: 048
     Dates: start: 20080301, end: 20080730
  2. NEODOPASOL [Concomitant]
     Dosage: 500 MG
     Route: 048
  3. URSO 250 [Concomitant]
     Dosage: 600 MG
     Route: 048
  4. ANTI-PARKINSON AGENTS [Concomitant]
  5. PRAMIPEXOLE DIHYDROCHLORIDE [Concomitant]

REACTIONS (2)
  - HYPERTHERMIA [None]
  - WHITE BLOOD CELL COUNT DECREASED [None]
